FAERS Safety Report 11438832 (Version 1)
Quarter: 2015Q3

REPORT INFORMATION
  Report Type: Spontaneous
  Country: US (occurrence: US)
  Receive Date: 20150901
  Receipt Date: 20150901
  Transmission Date: 20151125
  Serious: No
  Sender: FDA-Public Use
  Company Number: US-ROCHE-1144030

PATIENT
  Sex: Female

DRUGS (1)
  1. PEGASYS [Suspect]
     Active Substance: PEGINTERFERON ALFA-2A
     Indication: PRODUCT USED FOR UNKNOWN INDICATION
     Route: 058

REACTIONS (6)
  - Wrong device dispensed [Unknown]
  - Product taste abnormal [Unknown]
  - Injection site haemorrhage [Unknown]
  - Hypersensitivity [Unknown]
  - Poor quality drug administered [Unknown]
  - Product odour abnormal [Unknown]
